FAERS Safety Report 25265502 (Version 2)
Quarter: 2025Q2

REPORT INFORMATION
  Report Type: Report from Study
  Country: US (occurrence: US)
  Receive Date: 20250502
  Receipt Date: 20250512
  Transmission Date: 20250716
  Serious: Yes (Hospitalization, Other)
  Sender: GILEAD
  Company Number: US-GILEAD-2025-0709457

PATIENT
  Age: 70 Year
  Sex: Male

DRUGS (1)
  1. AXICABTAGENE CILOLEUCEL [Suspect]
     Active Substance: AXICABTAGENE CILOLEUCEL
     Indication: Product used for unknown indication
     Route: 065

REACTIONS (7)
  - Pyrexia [Unknown]
  - Headache [Unknown]
  - Neutropenia [Unknown]
  - Hypoacusis [Unknown]
  - Memory impairment [Unknown]
  - Unevaluable event [Unknown]
  - Swelling [Unknown]

NARRATIVE: CASE EVENT DATE: 20250402
